FAERS Safety Report 10466081 (Version 3)
Quarter: 2014Q4

REPORT INFORMATION
  Report Type: Spontaneous
  Country: IT (occurrence: IT)
  Receive Date: 20140922
  Receipt Date: 20141212
  Transmission Date: 20150528
  Serious: No
  Sender: FDA-Public Use
  Company Number: IT-ASTRAZENECA-2014SE68365

PATIENT
  Age: 31593 Day
  Sex: Female

DRUGS (4)
  1. TAVOR [Suspect]
     Active Substance: LORAZEPAM
     Indication: ANXIETY
     Route: 048
  2. TAVOR [Suspect]
     Active Substance: LORAZEPAM
     Indication: ANXIETY
     Route: 048
     Dates: start: 20140101, end: 20140101
  3. SEROQUEL [Suspect]
     Active Substance: QUETIAPINE FUMARATE
     Indication: SCHIZOPHRENIA
     Route: 048
     Dates: start: 20140101, end: 20140831
  4. UNIDENTIFIED DRUG [Concomitant]
     Indication: HYPERTENSION

REACTIONS (2)
  - Presyncope [Recovered/Resolved]
  - Vomiting [Recovered/Resolved]

NARRATIVE: CASE EVENT DATE: 20140831
